FAERS Safety Report 8404752-5 (Version None)
Quarter: 2012Q2

REPORT INFORMATION
  Report Type: 
  Country: None (occurrence: None)
  Receive Date: 20120601
  Receipt Date: 20111219
  Transmission Date: 20120825
  Serious: No
  Sender: FDA-Public Use
  Company Number: US-NOVEN-11US003810

PATIENT
  Sex: Female

DRUGS (2)
  1. DAYTRANA [Suspect]
     Dosage: 2 X 10MG, QD FOR 9HRS
     Dates: start: 20111201
  2. DAYTRANA [Suspect]
     Indication: ATTENTION DEFICIT/HYPERACTIVITY DISORDER
     Dosage: 10 MG FOR 9 HOURS DAILY
     Route: 062
     Dates: start: 20111201

REACTIONS (7)
  - INCORRECT STORAGE OF DRUG [None]
  - DRUG PRESCRIBING ERROR [None]
  - OFF LABEL USE [None]
  - DRUG INEFFECTIVE [None]
  - WRONG TECHNIQUE IN DRUG USAGE PROCESS [None]
  - PRODUCT QUALITY ISSUE [None]
  - DRUG ADMINISTRATION ERROR [None]
